FAERS Safety Report 4362357-X (Version None)
Quarter: 2004Q2

REPORT INFORMATION
  Report Type: 
  Country: None (occurrence: None)
  Receive Date: 20040521
  Receipt Date: 20040511
  Transmission Date: 20050107
  Serious: Yes (Death, Hospitalization, Other)
  Sender: FDA-Public Use
  Company Number: JP-MERCK-0405USA01348

PATIENT
  Age: 4 Year
  Sex: Male

DRUGS (11)
  1. LAC-B [Concomitant]
     Route: 065
  2. [THERAPY UNSPECIFIED] [Concomitant]
     Route: 065
     Dates: start: 20040107
  3. MEIACT [Concomitant]
     Route: 065
     Dates: start: 20040426, end: 20040501
  4. TAGAMET [Concomitant]
     Route: 065
     Dates: start: 20020430
  5. PEPCID [Suspect]
     Indication: GASTRITIS
     Route: 065
     Dates: start: 20010101, end: 20040430
  6. FERRIC PYROPHOSPHATE [Concomitant]
     Route: 065
  7. GASMOTIN [Concomitant]
     Route: 065
  8. PHENOBAL [Concomitant]
     Route: 065
  9. ULCERLMIN [Concomitant]
     Route: 065
     Dates: start: 20010201
  10. BAKTAR [Concomitant]
     Route: 065
  11. TRICLORYL [Concomitant]
     Route: 065
     Dates: start: 20040201

REACTIONS (8)
  - BLOOD CREATINE PHOSPHOKINASE INCREASED [None]
  - GRANULOMA [None]
  - HEART RATE DECREASED [None]
  - HEPATITIS [None]
  - PYREXIA [None]
  - RESPIRATORY DISTRESS [None]
  - RESPIRATORY FAILURE [None]
  - TACHYCARDIA [None]
